FAERS Safety Report 23553103 (Version 1)
Quarter: 2024Q1

REPORT INFORMATION
  Report Type: Spontaneous
  Country: US (occurrence: None)
  Receive Date: 20240221
  Receipt Date: 20240221
  Transmission Date: 20240410
  Serious: Yes (Hospitalization)
  Sender: FDA-Public Use
  Company Number: None

PATIENT
  Age: 49 Year
  Sex: Male

DRUGS (1)
  1. HERBALS\TETRAHYDROCANNABINOL UNSPECIFIED [Suspect]
     Active Substance: HERBALS\TETRAHYDROCANNABINOL UNSPECIFIED

REACTIONS (6)
  - Chest pain [None]
  - Hyperhidrosis [None]
  - Disorientation [None]
  - Mental status changes [None]
  - Refusal of treatment by patient [None]
  - Substance use [None]

NARRATIVE: CASE EVENT DATE: 20231206
